FAERS Safety Report 9595242 (Version 1)
Quarter: 2013Q3

REPORT INFORMATION
  Report Type: Spontaneous
  Country: US (occurrence: None)
  Receive Date: 20130927
  Receipt Date: 20130927
  Transmission Date: 20140515
  Serious: Yes (Death)
  Sender: FDA-Public Use
  Company Number: CABO-13003083

PATIENT
  Age: 65 Year
  Sex: Male

DRUGS (5)
  1. COMETRIQ [Suspect]
     Indication: THYROID CANCER
     Route: 048
     Dates: start: 20130313, end: 201307
  2. ONDANSETRON (ONDANSETRON) [Concomitant]
  3. FENTANYL (FENTANYL) [Concomitant]
  4. DIPHENOXYLATE (DIPHENOXYLATE) [Concomitant]
  5. HYDROCODONE W/APAP (HYDROCODONE, PARACETAMOL) [Concomitant]

REACTIONS (1)
  - Malignant neoplasm progression [None]
